FAERS Safety Report 24443583 (Version 2)
Quarter: 2024Q4

REPORT INFORMATION
  Report Type: Report from Study
  Country: US (occurrence: US)
  Receive Date: 20241016
  Receipt Date: 20241017
  Transmission Date: 20250115
  Serious: No
  Sender: ROCHE
  Company Number: US-ROCHE-1978079

PATIENT
  Age: 76 Year
  Sex: Female

DRUGS (2)
  1. RITUXAN [Suspect]
     Active Substance: RITUXIMAB
     Indication: Demyelination
     Dosage: TWO-500 MG DOSE REFILL 1 TIME? FREQUENCY TEXT:DAY 1 AND DAY 15
     Route: 042
     Dates: start: 20180308
  2. RITUXAN [Suspect]
     Active Substance: RITUXIMAB
     Indication: Neuromyelitis optica spectrum disorder
     Dosage: 1- 300 MG VIALS,2- 100 MG VIALS?INFUSE INTRAVENOUSLY ON DAY 1
     Route: 042

REACTIONS (2)
  - Off label use [Unknown]
  - No adverse event [Unknown]
